FAERS Safety Report 4347480-8 (Version None)
Quarter: 2004Q2

REPORT INFORMATION
  Report Type: 
  Country: None (occurrence: None)
  Receive Date: 20040421
  Receipt Date: 20040204
  Transmission Date: 20050107
  Serious: Yes (Other)
  Sender: FDA-Public Use
  Company Number: 2003126569

PATIENT
  Age: 59 Year
  Sex: Female
  Weight: 7.2576 kg

DRUGS (12)
  1. RELPAX [Suspect]
     Indication: HEADACHE
     Dosage: (PRN), ORAL
     Route: 048
     Dates: start: 20030617, end: 20031201
  2. ASCORBIC ACID [Concomitant]
  3. LEVOTHYROXINE SODIUM [Concomitant]
  4. BUPROPION HYDROCHLORIDE [Concomitant]
  5. PAROXETINE HCL [Concomitant]
  6. CELECOXIB (CELECOXIB) [Concomitant]
  7. ALL OTHER NON-THERAPEUTIC PRODUCTS (ALL OTHER NON-THERAPEUTIC PRODUCTS [Concomitant]
  8. MULTIVITAMIN [Concomitant]
  9. VITAMIN B (VITAMIN B) [Concomitant]
  10. TOCOPHEROL CONCENTRATE CAP [Concomitant]
  11. GLUCOSAMINE (GLUCOSAMINE) [Concomitant]
  12. METHYLCELLULOSE (METHYLCELLULOSE) [Concomitant]

REACTIONS (2)
  - HEADACHE [None]
  - MIGRAINE [None]
